FAERS Safety Report 9546816 (Version 1)
Quarter: 2013Q3

REPORT INFORMATION
  Report Type: Spontaneous
  Country: US (occurrence: US)
  Receive Date: 20130924
  Receipt Date: 20130924
  Transmission Date: 20140515
  Serious: No
  Sender: FDA-Public Use
  Company Number: US-B.I. PHARMACEUTICALS,INC./RIDGEFIELD-2013-BI-28943BP

PATIENT
  Sex: Female
  Weight: 98 kg

DRUGS (13)
  1. SPIRIVA [Suspect]
     Indication: CHRONIC OBSTRUCTIVE PULMONARY DISEASE
     Dosage: 18 MCG
     Route: 048
     Dates: start: 2005
  2. ASPIRIN [Concomitant]
     Dosage: 81 MG
     Route: 048
     Dates: start: 2001
  3. ADVAIR [Concomitant]
     Indication: CHRONIC OBSTRUCTIVE PULMONARY DISEASE
     Dosage: 4 PUF
     Route: 055
     Dates: start: 2005
  4. XANAX [Concomitant]
     Indication: NEURALGIA
     Dosage: 1 MG
     Route: 048
     Dates: start: 2011
  5. LEVOTHYROXINE [Concomitant]
     Indication: HYPOTHYROIDISM
     Dosage: 0.125 MCG
     Route: 048
     Dates: start: 2009
  6. FENOFIBRATE [Concomitant]
     Indication: BLOOD CHOLESTEROL INCREASED
     Dosage: 134 MG
     Route: 048
     Dates: start: 2009
  7. FUROSEMIDE [Concomitant]
     Dosage: 80 MG
     Route: 048
     Dates: start: 2006
  8. OMEPRAZOLE [Concomitant]
     Indication: GASTROOESOPHAGEAL REFLUX DISEASE
     Dosage: 20 MG
     Route: 048
     Dates: start: 2009
  9. KLOR- CON [Concomitant]
     Dosage: 10 MEQ
     Route: 048
     Dates: start: 2006
  10. ALLOPURINOL [Concomitant]
     Indication: GOUT
     Dosage: 100 MG
     Route: 048
     Dates: start: 2010
  11. FISH OIL [Concomitant]
  12. ESCITALOPRAM [Concomitant]
     Dosage: 10 MG
     Route: 048
     Dates: start: 2007
  13. FOLIC ACID [Concomitant]

REACTIONS (1)
  - Deafness [Not Recovered/Not Resolved]
